FAERS Safety Report 21164098 (Version 2)
Quarter: 2022Q3

REPORT INFORMATION
  Report Type: Report from Study
  Country: IL (occurrence: IL)
  Receive Date: 20220803
  Receipt Date: 20220921
  Transmission Date: 20221027
  Serious: Yes (Other)
  Sender: FDA-Public Use
  Company Number: IL-Vifor (International) Inc.-VIT-2022-05307

PATIENT
  Age: 76 Year
  Sex: Male

DRUGS (20)
  1. VELPHORO [Suspect]
     Active Substance: SUCROFERRIC OXYHYDROXIDE
     Indication: Blood phosphorus increased
     Dosage: AT NOON
     Route: 048
     Dates: start: 20220710
  2. VELPHORO [Suspect]
     Active Substance: SUCROFERRIC OXYHYDROXIDE
     Dosage: UP TO 2.5 TABS PER DAY ACCORDING TO THE NUMBER OF MEALS
     Route: 048
     Dates: start: 2022
  3. CADEX [Concomitant]
  4. CINACALCET TEVA [Concomitant]
  5. CREON [Concomitant]
     Active Substance: PANCRELIPASE AMYLASE\PANCRELIPASE LIPASE\PANCRELIPASE PROTEASE
     Dosage: 1 CAP
  6. EURAX [Concomitant]
     Active Substance: CROTAMITON
     Dosage: 1 APPLICATION
  7. EXFORGE [Concomitant]
     Active Substance: AMLODIPINE BESYLATE\VALSARTAN
     Dosage: 160 MG/10 MG
  8. BISACODYL [Concomitant]
     Active Substance: BISACODYL
  9. LYRICA [Concomitant]
     Active Substance: PREGABALIN
  10. NEPRO HP [Concomitant]
     Dosage: LIQUID NUTRITION
  11. NORMOPRESAN [Concomitant]
  12. PROCTO-GLYVENOL CR [Concomitant]
     Dosage: 1 APPLICATION
     Route: 061
  13. RENVELA [Concomitant]
     Active Substance: SEVELAMER CARBONATE
     Dosage: 29/3
  14. SIMVASTATIN [Concomitant]
     Active Substance: SIMVASTATIN
  15. FEXOFENADINE [Concomitant]
     Active Substance: FEXOFENADINE HYDROCHLORIDE
  16. VENOFER [Concomitant]
     Active Substance: IRON SUCROSE
     Route: 042
  17. ZEMPLAR [Concomitant]
     Active Substance: PARICALCITOL
     Dosage: 5 MCG/1 ML
     Route: 042
  18. ZOPICLONE [Concomitant]
     Active Substance: ZOPICLONE
  19. ZEMPLAR [Concomitant]
     Active Substance: PARICALCITOL
  20. ARANESP SURECLICK [Concomitant]
     Route: 042

REACTIONS (3)
  - Melaena [Recovering/Resolving]
  - Faeces discoloured [Recovering/Resolving]
  - Off label use [Unknown]

NARRATIVE: CASE EVENT DATE: 20220710
